FAERS Safety Report 22101680 (Version 1)
Quarter: 2023Q1

REPORT INFORMATION
  Report Type: Report from Study
  Country: SE (occurrence: SE)
  Receive Date: 20230316
  Receipt Date: 20230316
  Transmission Date: 20230417
  Serious: Yes (Hospitalization)
  Sender: FDA-Public Use
  Company Number: SE-ABBVIE-21K-150-4169218-00

PATIENT
  Sex: Male

DRUGS (16)
  1. CARBIDOPA\LEVODOPA [Suspect]
     Active Substance: CARBIDOPA\LEVODOPA
     Indication: Parkinson^s disease
     Dosage: CURRENT DOSAGE: CONTINUOUS DOSE FROM 14 O^CLOCK: 4.7ML/H, EXTRA DOSE: 2.0ML.
     Route: 050
     Dates: start: 20211118
  2. CARBIDOPA\LEVODOPA [Suspect]
     Active Substance: CARBIDOPA\LEVODOPA
     Dosage: THERAPY DURATION: REMAINS AT 16H
     Route: 050
     Dates: start: 20170918
  3. CARBIDOPA\LEVODOPA [Suspect]
     Active Substance: CARBIDOPA\LEVODOPA
     Dosage: CURRENT DOSAGE: MORNING DOSE: 6.5 ML. CONTINUOUS DOSE: 3.3 ML/H. EXTRA DOSE 1.5 ML.
     Route: 050
     Dates: start: 20230314
  4. CARBIDOPA\LEVODOPA [Suspect]
     Active Substance: CARBIDOPA\LEVODOPA
     Dosage: CURRENT DOSAGE: MORNING DOSE: 9ML, CONTINUOUS DOSE DAY: 4.2ML/H
     Route: 050
     Dates: start: 20211118, end: 20211118
  5. CARBIDOPA\LEVODOPA [Suspect]
     Active Substance: CARBIDOPA\LEVODOPA
     Dosage: CURRENT DOSAGE: MORNING DOSE: 9ML, CONTINUOUS DOSE DAY: 4.2ML/H
     Route: 050
     Dates: start: 20211118
  6. CARBIDOPA\LEVODOPA [Suspect]
     Active Substance: CARBIDOPA\LEVODOPA
     Dosage: CURRENT DOSAGE: CONTINUOUS DOSE FROM 14 O^CLOCK: 4.7ML/H, EXTRA DOSE: 2.0ML.
     Route: 050
     Dates: start: 20211118, end: 2021
  7. CARBIDOPA\LEVODOPA [Suspect]
     Active Substance: CARBIDOPA\LEVODOPA
     Dosage: CURRENT DOSAGE: CONTINUOUS DOSE: 4.0 ML/H (UNTIL 12 NOON), THEN 4.5 ML/H. EVENING DOSE 4.7 ML/H.
     Route: 050
     Dates: start: 20211223
  8. CARBIDOPA\LEVODOPA [Suspect]
     Active Substance: CARBIDOPA\LEVODOPA
     Dosage: CURRENT DOSAGE: CD:4.0 ML/H(UNTIL 12 NOON), THEN 4.5 ML/H. EVENING DOSE 4.7 ML/H.
     Route: 050
     Dates: start: 20211223
  9. CARBIDOPA\LEVODOPA [Suspect]
     Active Substance: CARBIDOPA\LEVODOPA
     Dosage: THERAPY DURATION: REMAINS AT 16H
     Route: 050
     Dates: start: 20170918
  10. AMANTADINE HYDROCHLORIDE [Suspect]
     Active Substance: AMANTADINE HYDROCHLORIDE
     Indication: Hyperkinesia
     Route: 048
     Dates: start: 20230125, end: 20230206
  11. STALEVO [Concomitant]
     Active Substance: CARBIDOPA\ENTACAPONE\LEVODOPA
     Indication: Dopaminergic drug therapy
     Route: 048
  12. STALEVO [Concomitant]
     Active Substance: CARBIDOPA\ENTACAPONE\LEVODOPA
     Indication: Dopaminergic drug therapy
     Route: 048
     Dates: start: 20211118
  13. NEUPRO [Concomitant]
     Active Substance: ROTIGOTINE
     Indication: Product used for unknown indication
     Dosage: HALVED THE PLASTER, USING ONLY AT NIGHT.
     Route: 065
  14. NEUPRO [Concomitant]
     Active Substance: ROTIGOTINE
     Indication: Product used for unknown indication
     Dosage: CURRENT DOSAGE 4MG
     Route: 065
     Dates: start: 20211223
  15. CARBIDOPA\ENTACAPONE\LEVODOPA [Concomitant]
     Active Substance: CARBIDOPA\ENTACAPONE\LEVODOPA
     Indication: Product used for unknown indication
     Route: 048
  16. CARBIDOPA\ENTACAPONE\LEVODOPA [Concomitant]
     Active Substance: CARBIDOPA\ENTACAPONE\LEVODOPA
     Indication: Product used for unknown indication
     Route: 048
     Dates: start: 20211118

REACTIONS (8)
  - Hallucination [Recovered/Resolved]
  - Hyperkinesia [Recovering/Resolving]
  - Pain in extremity [Recovered/Resolved]
  - Muscular weakness [Recovered/Resolved]
  - Wheelchair user [Unknown]
  - Muscle spasms [Recovered/Resolved]
  - Walking aid user [Unknown]
  - Device breakage [Unknown]

NARRATIVE: CASE EVENT DATE: 20230101
